FAERS Safety Report 10012494 (Version 1)
Quarter: 2014Q1

REPORT INFORMATION
  Report Type: Spontaneous
  Country: US (occurrence: US)
  Receive Date: 20140312
  Receipt Date: 20140312
  Transmission Date: 20141002
  Serious: No
  Sender: FDA-Public Use
  Company Number: US-PFIZER INC-2014069107

PATIENT
  Age: 51 Year
  Sex: Female

DRUGS (8)
  1. TESSALON [Suspect]
     Dosage: UNK
  2. ZITHROMAX [Suspect]
     Dosage: UNK
  3. DOXYCYCLINE HYCLATE [Suspect]
     Dosage: UNK
  4. VANCOMYCIN HCL [Suspect]
     Dosage: UNK
  5. ERYTHROMYCIN [Suspect]
     Dosage: UNK
  6. KETOPROFEN [Suspect]
     Dosage: UNK
  7. CIPRO [Suspect]
     Dosage: UNK
  8. BACTRIM [Suspect]
     Dosage: UNK

REACTIONS (1)
  - Drug hypersensitivity [Unknown]
